FAERS Safety Report 11926150 (Version 8)
Quarter: 2016Q4

REPORT INFORMATION
  Report Type: Spontaneous
  Country: US (occurrence: US)
  Receive Date: 20160119
  Receipt Date: 20161207
  Transmission Date: 20170206
  Serious: Yes (Other)
  Sender: FDA-Public Use
  Company Number: PHEH2016US001414

PATIENT
  Sex: Female
  Weight: 86.17 kg

DRUGS (4)
  1. ZOFRAN ODT [Suspect]
     Active Substance: ONDANSETRON HYDROCHLORIDE
     Indication: VOMITING IN PREGNANCY
     Dosage: 8 MG, Q8H
     Route: 048
  2. ONDANSETRON [Suspect]
     Active Substance: ONDANSETRON
     Dosage: 8 MG, UNK
     Route: 065
     Dates: start: 20090203, end: 20090331
  3. ONDANSETRONE DR. REDDY^S [Suspect]
     Active Substance: ONDANSETRON HYDROCHLORIDE
     Indication: VOMITING IN PREGNANCY
     Dosage: 8 MG, UNK
     Route: 065
     Dates: start: 20081222, end: 20090129
  4. ONDANSETRON [Suspect]
     Active Substance: ONDANSETRON
     Indication: VOMITING IN PREGNANCY
     Dosage: 8 MG, UNK
     Route: 065
     Dates: start: 20081118, end: 200901

REACTIONS (9)
  - Maternal exposure during pregnancy [Unknown]
  - Depression [Unknown]
  - Product use issue [Unknown]
  - Emotional distress [Unknown]
  - Anxiety [Unknown]
  - Normal newborn [Unknown]
  - Haemorrhage [Unknown]
  - Pain [Unknown]
  - Injury [Unknown]
